FAERS Safety Report 7241674-X (Version None)
Quarter: 2011Q1

REPORT INFORMATION
  Report Type: 
  Country: None (occurrence: None)
  Receive Date: 20110124
  Receipt Date: 20110112
  Transmission Date: 20110831
  Serious: Yes (Other)
  Sender: FDA-Public Use
  Company Number: PHHY2010DE89715

PATIENT
  Sex: Female

DRUGS (21)
  1. LEVOTHYROXINE SODIUM [Concomitant]
     Indication: HYPOTHYROIDISM
     Dosage: 200 UG,?-0-0
     Route: 048
  2. ALLOPURINOL [Concomitant]
     Indication: RENAL FAILURE
     Dosage: 100 MG, 0-0-0-1/2
     Route: 048
  3. ZOPICLON [Concomitant]
     Indication: SLEEP DISORDER
     Route: 048
  4. REMERGIL [Concomitant]
     Indication: SLEEP DISORDER
     Route: 048
  5. RED BLOOD CELLS [Concomitant]
     Indication: ANAEMIA
     Dosage: UNK
     Route: 042
     Dates: start: 20100801
  6. PETROLATUM LIP STICK [Concomitant]
     Indication: LIP DISORDER
     Dosage: UNK
     Dates: start: 20101227
  7. CARVEDILOL [Concomitant]
     Dosage: 25 MG, BID
     Route: 048
  8. CLONIDINE [Concomitant]
     Indication: HYPERTENSION
     Dosage: 250 UG, 0-0-1
     Route: 048
     Dates: start: 20110113
  9. HUMALOG [Concomitant]
     Indication: DIABETES MELLITUS
     Dosage: UNK
     Route: 058
  10. LASIX [Concomitant]
     Indication: RENAL FAILURE
     Dosage: 500 MG,? -1/2-0
     Route: 048
  11. MOXONIDINE [Concomitant]
     Dosage: 3 MG, 1-0-0-1
     Route: 048
  12. LISINOPRIL [Concomitant]
     Indication: HYPERTENSION
     Dosage: 5 MG,1-1-1
     Route: 048
  13. LORAZEPAM [Concomitant]
     Indication: SLEEP DISORDER
     Route: 048
  14. POSTERISAN [Concomitant]
     Dosage: UNK
     Dates: start: 20110104
  15. AFINITOR [Suspect]
     Indication: RENAL CELL CARCINOMA
     Dosage: 10 MG, QD
     Route: 048
     Dates: start: 20101216, end: 20101230
  16. METHYLDOPA [Concomitant]
     Indication: HYPERTENSION
     Dosage: 250 MG, 1-1-1-1
     Route: 048
  17. NIFEDIPINE [Concomitant]
     Indication: HYPERTENSIVE CRISIS
     Route: 048
  18. GLANDOSANE [Concomitant]
     Indication: MUCOSAL INFLAMMATION
     Dosage: UNK
     Route: 048
     Dates: start: 20101223
  19. AFINITOR [Suspect]
     Dosage: 5 MG, QD
     Route: 048
     Dates: start: 20110104
  20. AMLODIPINE [Concomitant]
     Indication: HYPERTENSION
     Dosage: 5 MG, 1-0-1
     Route: 048
  21. DIGIMERCK [Concomitant]
     Indication: CARDIAC FAILURE CONGESTIVE
     Dosage: 1 MG, QD
     Route: 048

REACTIONS (12)
  - MUCOSAL INFLAMMATION [None]
  - OEDEMA PERIPHERAL [None]
  - WOUND [None]
  - EPISTAXIS [None]
  - BLISTER [None]
  - DYSPHAGIA [None]
  - LACERATION [None]
  - DIARRHOEA [None]
  - DYSGEUSIA [None]
  - LIP SWELLING [None]
  - DIZZINESS [None]
  - BLOOD GLUCOSE INCREASED [None]
